FAERS Safety Report 22838253 (Version 2)
Quarter: 2023Q4

REPORT INFORMATION
  Report Type: Report from Study
  Country: US (occurrence: US)
  Receive Date: 20230818
  Receipt Date: 20231012
  Transmission Date: 20240109
  Serious: Yes (Other)
  Sender: FDA-Public Use
  Company Number: US-ARGENX-2022-ARGX-US000992

PATIENT

DRUGS (3)
  1. VYVGART [Suspect]
     Active Substance: EFGARTIGIMOD ALFA-FCAB
     Indication: Myasthenia gravis
     Dosage: 10 MG/KG
     Route: 042
     Dates: start: 20220524
  2. VYVGART [Suspect]
     Active Substance: EFGARTIGIMOD ALFA-FCAB
     Dosage: 10 MG/KG
     Route: 042
     Dates: start: 20230206
  3. MESTINON [Suspect]
     Active Substance: PYRIDOSTIGMINE BROMIDE
     Indication: Product used for unknown indication
     Dosage: UNK
     Route: 065

REACTIONS (10)
  - Pituitary tumour [Unknown]
  - Neoplasm malignant [Unknown]
  - Pneumonia [Unknown]
  - Rash [Unknown]
  - Diarrhoea [Unknown]
  - Muscular weakness [Unknown]
  - Visual impairment [Unknown]
  - Product physical issue [Unknown]
  - Inappropriate schedule of product administration [Unknown]
  - COVID-19 [Unknown]

NARRATIVE: CASE EVENT DATE: 20230201
